FAERS Safety Report 7460456-7 (Version None)
Quarter: 2011Q2

REPORT INFORMATION
  Report Type: 
  Country: None (occurrence: None)
  Receive Date: 20110505
  Receipt Date: 20110426
  Transmission Date: 20111010
  Serious: Yes (Other)
  Sender: FDA-Public Use
  Company Number: B0717285A

PATIENT
  Sex: Male
  Weight: 74 kg

DRUGS (1)
  1. OMACOR [Suspect]
     Route: 048

REACTIONS (2)
  - MUCOSAL ULCERATION [None]
  - PAIN [None]
